FAERS Safety Report 7982814-4 (Version None)
Quarter: 2011Q4

REPORT INFORMATION
  Report Type: 
  Country: None (occurrence: None)
  Receive Date: 20111215
  Receipt Date: 20111213
  Transmission Date: 20120403
  Serious: Yes (Hospitalization)
  Sender: FDA-Public Use
  Company Number: US-BAYER-2011-040064

PATIENT
  Sex: Female

DRUGS (2)
  1. NEXAVAR [Suspect]
     Dosage: 400 MG, UNK
     Dates: start: 20110101
  2. NEXAVAR [Suspect]
     Indication: HEPATIC NEOPLASM MALIGNANT
     Dosage: 200 MG, UNK
     Dates: start: 20101113

REACTIONS (2)
  - SURGERY [None]
  - MENORRHAGIA [None]
